FAERS Safety Report 9600819 (Version 1)
Quarter: 2013Q4

REPORT INFORMATION
  Report Type: Spontaneous
  Country: US (occurrence: US)
  Receive Date: 20131004
  Receipt Date: 20131004
  Transmission Date: 20140711
  Serious: No
  Sender: FDA-Public Use
  Company Number: US-AMGEN-USASP2013037022

PATIENT
  Age: 55 Year
  Sex: Female
  Weight: 56.69 kg

DRUGS (4)
  1. ENBREL [Suspect]
     Indication: PRODUCT USED FOR UNKNOWN INDICATION
     Dosage: 50 MG, QWK
     Route: 058
  2. PERCOCET                           /00446701/ [Concomitant]
     Dosage: 7.5-500
  3. PREDNISONE [Concomitant]
     Dosage: 10 MG, UNK
  4. TRAMADOL HCL [Concomitant]
     Dosage: 50 MG, UNK

REACTIONS (1)
  - Hepatic enzyme increased [Recovered/Resolved]
